FAERS Safety Report 8935145 (Version 2)
Quarter: 2012Q4

REPORT INFORMATION
  Report Type: 
  Country: GB (occurrence: US)
  Receive Date: 20121129
  Receipt Date: 20121221
  Transmission Date: 20130627
  Serious: Yes (Hospitalization)
  Sender: FDA-Public Use
  Company Number: GB-MPIJNJ-2012-08382

PATIENT
  Age: 81 Year
  Sex: Male
  Weight: 71.4 kg

DRUGS (8)
  1. VELCADE [Suspect]
     Indication: MULTIPLE MYELOMA
     Route: 065
  2. BEVACIZUMAB [Suspect]
     Indication: MULTIPLE MYELOMA
     Dosage: 1092 mg, q3weeks
     Route: 042
  3. ZOCOR [Concomitant]
     Indication: PRODUCT USED FOR UNKNOWN INDICATION
     Dosage: 20 mg, qd
     Route: 065
  4. PREVACID [Concomitant]
     Indication: PRODUCT USED FOR UNKNOWN INDICATION
     Dosage: UNK UNK, qd
     Route: 065
  5. AMBIEN [Concomitant]
     Indication: PRODUCT USED FOR UNKNOWN INDICATION
     Route: 065
  6. ACICLOVIR [Concomitant]
     Indication: PRODUCT USED FOR UNKNOWN INDICATION
     Dosage: 200 mg, tid
     Route: 065
  7. GABAPENTIN [Concomitant]
     Indication: PRODUCT USED FOR UNKNOWN INDICATION
     Dosage: 300 mg, tid
     Route: 065
  8. TOPROL [Concomitant]
     Indication: PRODUCT USED FOR UNKNOWN INDICATION
     Dosage: UNK, qd
     Route: 065

REACTIONS (2)
  - Subarachnoid haemorrhage [Recovered/Resolved]
  - Thrombocytopenia [Unknown]
